FAERS Safety Report 5857138-1 (Version None)
Quarter: 2008Q3

REPORT INFORMATION
  Report Type: 
  Country: None (occurrence: None)
  Receive Date: 20080825
  Receipt Date: 20080811
  Transmission Date: 20090109
  Serious: Yes (Other)
  Sender: FDA-Public Use
  Company Number: US-ELI_LILLY_AND_COMPANY-US200808002091

PATIENT
  Sex: Female

DRUGS (5)
  1. EVISTA [Suspect]
     Dosage: 60 MG, UNK
     Dates: start: 19980101, end: 19990101
  2. EVISTA [Suspect]
     Dosage: 60 MG, UNK
     Dates: end: 20080301
  3. EVISTA [Suspect]
     Dosage: 60 MG, UNK
     Dates: start: 20080604
  4. ARIMIDEX [Concomitant]
     Dosage: UNK, UNK
     Dates: start: 20070401
  5. BONIVA [Concomitant]
     Indication: OSTEOPOROSIS
     Dosage: UNK, UNK
     Dates: start: 20080320

REACTIONS (6)
  - BODY HEIGHT DECREASED [None]
  - BONE DENSITY DECREASED [None]
  - BREAST CANCER [None]
  - MALIGNANT MELANOMA [None]
  - MENOPAUSE [None]
  - OSTEOPOROSIS [None]
